FAERS Safety Report 10022034 (Version 2)
Quarter: 2014Q1

REPORT INFORMATION
  Report Type: Spontaneous
  Country: US (occurrence: None)
  Receive Date: 20131206
  Receipt Date: 20140313
  Transmission Date: 20141002
  Serious: Yes (Hospitalization, Other)
  Sender: FDA-Public Use
  Company Number: ADR-2013-02131

PATIENT
  Age: 50 Year
  Sex: Female

DRUGS (3)
  1. BACLOFEN [Suspect]
     Indication: MUSCLE SPASTICITY
  2. BACLOFEN [Suspect]
  3. TIZANIDINE [Suspect]
     Route: 048

REACTIONS (7)
  - Device connection issue [None]
  - Device issue [None]
  - Implant site pain [None]
  - Activities of daily living impaired [None]
  - Muscle spasms [None]
  - Device leakage [None]
  - No therapeutic response [None]
